FAERS Safety Report 15289926 (Version 1)
Quarter: 2018Q4

REPORT INFORMATION
  Report Type: Spontaneous
  Country: DK (occurrence: DK)
  Receive Date: 20180817
  Receipt Date: 20180817
  Transmission Date: 20190204
  Serious: Yes (Hospitalization)
  Sender: FDA-Public Use
  Company Number: DK-TEVA-2018-DK-943278

PATIENT
  Age: 40 Year
  Sex: Female

DRUGS (3)
  1. SENDOXAN [Suspect]
     Active Substance: CYCLOPHOSPHAMIDE
     Indication: INVASIVE DUCTAL BREAST CARCINOMA
     Route: 065
     Dates: start: 20171207
  2. EMPERAL [Concomitant]
     Active Substance: METOCLOPRAMIDE HYDROCHLORIDE
     Indication: NAUSEA
     Route: 048
     Dates: start: 20171207
  3. EPIRUBICIN ^TEVA^ [Suspect]
     Active Substance: EPIRUBICIN
     Indication: INVASIVE DUCTAL BREAST CARCINOMA
     Dosage: STYRKE: 2 MG/ML
     Route: 065
     Dates: start: 20171207

REACTIONS (11)
  - Hyponatraemia [Recovered/Resolved]
  - Restlessness [Recovered/Resolved]
  - Spinal fracture [Unknown]
  - Musculoskeletal chest pain [Not Recovered/Not Resolved]
  - Tremor [Recovered/Resolved]
  - Cardiac arrest [Recovered/Resolved]
  - Coordination abnormal [Recovered/Resolved]
  - Muscular weakness [Recovered/Resolved]
  - Extrapyramidal disorder [Recovered/Resolved]
  - Back pain [Not Recovered/Not Resolved]
  - Seizure [Recovered/Resolved]

NARRATIVE: CASE EVENT DATE: 201712
